FAERS Safety Report 24753333 (Version 1)
Quarter: 2024Q4

REPORT INFORMATION
  Report Type: Spontaneous
  Country: US (occurrence: None)
  Receive Date: 20241219
  Receipt Date: 20241219
  Transmission Date: 20250115
  Serious: Yes (Hospitalization)
  Sender: Public
  Company Number: None

PATIENT
  Sex: Female

DRUGS (12)
  1. LENALIDOMIDE [Suspect]
     Active Substance: LENALIDOMIDE
     Indication: Plasma cell myeloma
     Dosage: OTHER FREQUENCY : DAILY FOR 21 DAYS FOLLOWED BY 7 DAYS OFF;?
     Route: 048
     Dates: start: 20241116
  2. ASPIRIN [Suspect]
     Active Substance: ASPIRIN
  3. ACETAMINOPHEN [Concomitant]
     Active Substance: ACETAMINOPHEN
  4. ALBUTEROL [Concomitant]
     Active Substance: ALBUTEROL
  5. BENZONATATE [Concomitant]
     Active Substance: BENZONATATE
  6. CALTRATE+D [Concomitant]
  7. COENZYME Q10 [Concomitant]
     Active Substance: DIETARY SUPPLEMENT\UBIDECARENONE
  8. DARZALEX [Concomitant]
     Active Substance: DARATUMUMAB
  9. DEXAMETHASONE [Concomitant]
     Active Substance: DEXAMETHASONE
  10. ELIQUIS [Concomitant]
     Active Substance: APIXABAN
  11. EPINEPHRINE [Concomitant]
     Active Substance: EPINEPHRINE
  12. FEXOFENADINE HYDROCHLORIDE [Concomitant]
     Active Substance: FEXOFENADINE HYDROCHLORIDE

REACTIONS (12)
  - Pancytopenia [None]
  - Febrile neutropenia [None]
  - Ascites [None]
  - Oedema peripheral [None]
  - Oedema [None]
  - Portal vein thrombosis [None]
  - Splenomegaly [None]
  - Contusion [None]
  - Anaemia macrocytic [None]
  - Therapy change [None]
  - Thrombocytopenia [None]
  - Therapy interrupted [None]
